FAERS Safety Report 25926844 (Version 1)
Quarter: 2025Q4

REPORT INFORMATION
  Report Type: Spontaneous
  Country: CN (occurrence: CN)
  Receive Date: 20251015
  Receipt Date: 20251015
  Transmission Date: 20260118
  Serious: Yes (Life-Threatening, Hospitalization, Other)
  Sender: PFIZER
  Company Number: CN-PFIZER INC-PV202500121527

PATIENT
  Age: 11 Year
  Sex: Female
  Weight: 30.5 kg

DRUGS (1)
  1. METHOTREXATE SODIUM [Suspect]
     Active Substance: METHOTREXATE SODIUM
     Indication: T-cell type acute leukaemia
     Dosage: 5.3 G, 1X/DAY
     Route: 041
     Dates: start: 20250919, end: 20250919

REACTIONS (10)
  - Drug level increased [Recovering/Resolving]
  - Seizure [Recovered/Resolved]
  - Renal impairment [Recovering/Resolving]
  - Hypertension [Recovering/Resolving]
  - Abdominal pain [Recovering/Resolving]
  - Vomiting [Recovering/Resolving]
  - Pain in extremity [Recovering/Resolving]
  - Blindness [Recovering/Resolving]
  - Headache [Unknown]
  - Dizziness [Unknown]

NARRATIVE: CASE EVENT DATE: 20250920
